FAERS Safety Report 22093437 (Version 1)
Quarter: 2023Q1

REPORT INFORMATION
  Report Type: Spontaneous
  Country: US (occurrence: US)
  Receive Date: 20230314
  Receipt Date: 20230314
  Transmission Date: 20230417
  Serious: Yes (Other)
  Sender: FDA-Public Use
  Company Number: US-Hikma Pharmaceuticals USA Inc.-US-H14001-23-00758

PATIENT
  Sex: Male
  Weight: 63.5 kg

DRUGS (18)
  1. PREDNISONE [Suspect]
     Active Substance: PREDNISONE
     Indication: Product used for unknown indication
     Dosage: IN THE MORNING
     Route: 065
  2. CLOBAZAM [Suspect]
     Active Substance: CLOBAZAM
     Indication: Epilepsy
     Dosage: AT A SMALL DOSE WHICH WAS SUBSEQUENTLY ADJUSTED TO 20 MG
     Route: 048
     Dates: start: 201909
  3. CLOBAZAM [Suspect]
     Active Substance: CLOBAZAM
     Indication: Seizure
     Route: 048
     Dates: start: 201909
  4. CLOBAZAM [Suspect]
     Active Substance: CLOBAZAM
     Route: 048
     Dates: start: 20230114
  5. CLOBAZAM [Suspect]
     Active Substance: CLOBAZAM
     Route: 048
  6. CLOBAZAM [Suspect]
     Active Substance: CLOBAZAM
     Route: 048
     Dates: end: 20230111
  7. CLOBAZAM [Suspect]
     Active Substance: CLOBAZAM
     Route: 048
     Dates: start: 20230114, end: 20230114
  8. CLOBAZAM [Suspect]
     Active Substance: CLOBAZAM
     Route: 048
     Dates: start: 20230115, end: 20230115
  9. CLOBAZAM [Suspect]
     Active Substance: CLOBAZAM
     Dosage: 10 MG IN THE AM AND 20 MG IN THE EVENING
     Route: 048
     Dates: start: 20230116, end: 2023
  10. CLOBAZAM [Suspect]
     Active Substance: CLOBAZAM
     Route: 048
     Dates: start: 2023, end: 20230204
  11. CELLCEPT [Suspect]
     Active Substance: MYCOPHENOLATE MOFETIL
     Indication: Product used for unknown indication
     Dosage: UNKNOWN
     Route: 065
  12. ATIVAN [Concomitant]
     Active Substance: LORAZEPAM
     Indication: Product used for unknown indication
     Dosage: UNKNOWN
     Route: 065
  13. VIMPAT [Concomitant]
     Active Substance: LACOSAMIDE
     Indication: Product used for unknown indication
     Dosage: UNKNOWN
     Route: 065
  14. GABAPENTIN [Concomitant]
     Active Substance: GABAPENTIN
     Indication: Product used for unknown indication
     Dosage: AT NIGHT
     Route: 065
  15. ASPIRIN [Concomitant]
     Active Substance: ASPIRIN
     Indication: Product used for unknown indication
     Route: 065
     Dates: start: 201909
  16. FLUOXETINE [Concomitant]
     Active Substance: FLUOXETINE HYDROCHLORIDE
     Indication: Product used for unknown indication
     Dosage: UNKNOWN
     Route: 065
  17. METOPROLOL [Concomitant]
     Active Substance: METOPROLOL
     Indication: Blood pressure measurement
     Dosage: AT A LOW DOSE
     Route: 065
  18. FAMOTIDINE [Concomitant]
     Active Substance: FAMOTIDINE
     Indication: Product used for unknown indication
     Dosage: UNKNOWN
     Route: 065

REACTIONS (6)
  - Suicidal ideation [Recovering/Resolving]
  - Aggression [Not Recovered/Not Resolved]
  - Agitation [Not Recovered/Not Resolved]
  - Anxiety [Not Recovered/Not Resolved]
  - Fall [Unknown]
  - Product dose omission issue [Unknown]
